FAERS Safety Report 10229680 (Version 2)
Quarter: 2014Q2

REPORT INFORMATION
  Report Type: Spontaneous
  Country: AU (occurrence: AU)
  Receive Date: 20140611
  Receipt Date: 20140611
  Transmission Date: 20141212
  Serious: Yes (Hospitalization, Other)
  Sender: FDA-Public Use
  Company Number: AU-INDICUS PHARMA-000260

PATIENT
  Age: 67 Year
  Sex: Male

DRUGS (12)
  1. METFORMIN [Suspect]
     Indication: PRODUCT USED FOR UNKNOWN INDICATION
  2. GLICLAZIDE [Suspect]
     Indication: PRODUCT USED FOR UNKNOWN INDICATION
  3. WARFARIN [Suspect]
     Indication: PRODUCT USED FOR UNKNOWN INDICATION
  4. INDAPAMIDE/INDAPAMIDE HEMIHYDRATE [Suspect]
     Indication: PRODUCT USED FOR UNKNOWN INDICATION
  5. PANTOPRAZOLE [Suspect]
     Indication: PRODUCT USED FOR UNKNOWN INDICATION
  6. ATORVASTATIN [Suspect]
     Indication: PRODUCT USED FOR UNKNOWN INDICATION
  7. FLUOXETINE [Suspect]
     Indication: PRODUCT USED FOR UNKNOWN INDICATION
  8. ISOPHANE INSULIN [Suspect]
     Indication: PRODUCT USED FOR UNKNOWN INDICATION
     Dosage: 30 UNITS NOCTE
  9. PERINDOPRIL/PERINDOPRIL ERBUMINE [Suspect]
     Indication: PRODUCT USED FOR UNKNOWN INDICATION
  10. FELODIPINE [Suspect]
     Indication: PRODUCT USED FOR UNKNOWN INDICATION
  11. SODIUM PICOSULFATE [Suspect]
     Indication: COLONOSCOPY
  12. ALLOPURINOL [Suspect]
     Indication: PRODUCT USED FOR UNKNOWN INDICATION

REACTIONS (12)
  - Lactic acidosis [Recovered/Resolved]
  - Renal failure acute [Unknown]
  - Chest pain [Unknown]
  - Dehydration [Unknown]
  - Sinus tachycardia [Unknown]
  - Colon adenoma [None]
  - Respiratory rate increased [None]
  - Electrocardiogram ST segment depression [None]
  - Blood pressure decreased [None]
  - Continuous haemodiafiltration [None]
  - Scan myocardial perfusion abnormal [None]
  - Hypoperfusion [None]
